FAERS Safety Report 6474847-4 (Version None)
Quarter: 2009Q4

REPORT INFORMATION
  Report Type: 
  Country: None (occurrence: None)
  Receive Date: 20091204
  Receipt Date: 20090519
  Transmission Date: 20100525
  Serious: Yes (Death)
  Sender: FDA-Public Use
  Company Number: US-ELI_LILLY_AND_COMPANY-US200902006688

PATIENT
  Age: 60 Year
  Sex: Female
  Weight: 99.773 kg

DRUGS (9)
  1. CYMBALTA [Suspect]
     Indication: DEPRESSION
     Dosage: 30 MG, UNK
     Dates: start: 20070301, end: 20071105
  2. OXYCODONE HCL [Concomitant]
     Indication: ABDOMINAL PAIN
  3. SPIRONOLACTONE [Concomitant]
     Indication: ASCITES
  4. EFFEXOR XR [Concomitant]
     Indication: DEPRESSION
  5. METANX [Concomitant]
     Indication: ANTITHROMBIN III DEFICIENCY
  6. BENADRYL [Concomitant]
     Indication: ADVERSE EVENT
  7. POTASSIUM [Concomitant]
     Indication: HYPOKALAEMIA
  8. OMEPRAZOLE [Concomitant]
     Indication: GASTROOESOPHAGEAL REFLUX DISEASE
  9. NASONEX [Concomitant]
     Indication: RHINITIS
     Dosage: 50 MG, UNK

REACTIONS (2)
  - HEPATIC FAILURE [None]
  - HEPATIC STEATOSIS [None]
